FAERS Safety Report 7227684-7 (Version None)
Quarter: 2011Q1

REPORT INFORMATION
  Report Type: 
  Country: None (occurrence: None)
  Receive Date: 20110114
  Receipt Date: 20110105
  Transmission Date: 20110831
  Serious: Yes (Other)
  Sender: FDA-Public Use
  Company Number: US-PFIZER INC-2011003317

PATIENT
  Sex: Male
  Weight: 135.15 kg

DRUGS (8)
  1. ZANTAC [Concomitant]
     Indication: GASTROOESOPHAGEAL REFLUX DISEASE
     Dosage: UNK
  2. METOPROLOL [Concomitant]
     Indication: HYPERTENSION
     Dosage: UNK
  3. MICARDIS [Concomitant]
     Indication: HYPERTENSION
     Dosage: 80 MG, UNK
  4. PLAVIX [Concomitant]
     Indication: STENT PLACEMENT
     Dosage: UNK
  5. CIALIS [Concomitant]
     Indication: ERECTILE DYSFUNCTION
     Dosage: UNK
  6. CRESTOR [Concomitant]
     Indication: BLOOD CHOLESTEROL INCREASED
     Dosage: 10 MG, UNK
  7. VIAGRA [Suspect]
     Indication: ERECTILE DYSFUNCTION
     Dosage: 100 MG, AS NEEDED
     Route: 048
     Dates: start: 20100428
  8. ACETYLSALICYLIC ACID [Concomitant]
     Dosage: UNK

REACTIONS (4)
  - VISION BLURRED [None]
  - ABDOMINAL PAIN UPPER [None]
  - BACK PAIN [None]
  - DRUG INEFFECTIVE [None]
